FAERS Safety Report 4643362-2 (Version None)
Quarter: 2005Q2

REPORT INFORMATION
  Report Type: 
  Country: None (occurrence: None)
  Receive Date: 20050422
  Receipt Date: 20050405
  Transmission Date: 20051028
  Serious: Yes (Death, Hospitalization, Other)
  Sender: FDA-Public Use
  Company Number: US-2004-027602

PATIENT
  Age: 65 Year
  Sex: Female
  Weight: 63.5 kg

DRUGS (8)
  1. BETASERON [Suspect]
     Indication: MULTIPLE SCLEROSIS
     Dosage: 8 MIU, EVERY 2 D, SUBCUTANEOUS
     Route: 058
     Dates: start: 20021217
  2. LASIX [Suspect]
     Dosage: 20 MG, 2X/DAY
     Dates: start: 20030601, end: 20030601
  3. LABETALOL HCL [Suspect]
     Indication: HYPERTENSION
     Dosage: SEE IMAGE
     Route: 048
     Dates: start: 20040217, end: 20040217
  4. LABETALOL HCL [Suspect]
     Indication: HYPERTENSION
     Dosage: SEE IMAGE
     Route: 048
     Dates: start: 20040201
  5. ELAVIL [Concomitant]
  6. LIPITOR [Concomitant]
  7. ACETYLSALICYLIC ACID SRT [Concomitant]
  8. MULTIVITAMINS (RETINOL, PANTHENOL) [Concomitant]

REACTIONS (40)
  - ABDOMINAL MASS [None]
  - AORTIC OCCLUSION [None]
  - BLOOD GLUCOSE INCREASED [None]
  - BLOOD PH INCREASED [None]
  - CARDIAC MURMUR [None]
  - COGNITIVE DISORDER [None]
  - CONVULSION [None]
  - CORONARY ARTERY DISEASE [None]
  - DECUBITUS ULCER [None]
  - DEHYDRATION [None]
  - DELIRIUM [None]
  - DEPRESSED LEVEL OF CONSCIOUSNESS [None]
  - ELECTROENCEPHALOGRAM ABNORMAL [None]
  - FALL [None]
  - HAEMATEMESIS [None]
  - HYDROCEPHALUS [None]
  - HYPERKALAEMIA [None]
  - HYPERTENSION [None]
  - HYPOKALAEMIA [None]
  - HYPONATRAEMIA [None]
  - HYPOVOLAEMIA [None]
  - MALNUTRITION [None]
  - METABOLIC ALKALOSIS [None]
  - NEPHROLITHIASIS [None]
  - NORMOCHROMIC NORMOCYTIC ANAEMIA [None]
  - ORTHOSTATIC HYPOTENSION [None]
  - PERIPHERAL VASCULAR DISORDER [None]
  - PROGRESSIVE MULTIPLE SCLEROSIS [None]
  - REFUSAL OF TREATMENT BY PATIENT [None]
  - RENAL FAILURE ACUTE [None]
  - RESPIRATORY DISTRESS [None]
  - SINUS TACHYCARDIA [None]
  - SPINAL OSTEOARTHRITIS [None]
  - TREATMENT NONCOMPLIANCE [None]
  - ULTRASOUND ABDOMEN ABNORMAL [None]
  - URINARY TRACT INFECTION ENTEROCOCCAL [None]
  - VASCULAR GRAFT OCCLUSION [None]
  - VASCULAR OCCLUSION [None]
  - VENTRICULAR EXTRASYSTOLES [None]
  - VERTIGO POSITIONAL [None]
